FAERS Safety Report 13274872 (Version 5)
Quarter: 2017Q3

REPORT INFORMATION
  Report Type: Spontaneous
  Country: US (occurrence: US)
  Receive Date: 20170227
  Receipt Date: 20170818
  Transmission Date: 20171127
  Serious: Yes (Death, Hospitalization, Other)
  Sender: FDA-Public Use
  Company Number: US-ACTELION-A-US2017-150183

PATIENT
  Age: 14 Year
  Sex: Female

DRUGS (3)
  1. OPSUMIT [Suspect]
     Active Substance: MACITENTAN
     Indication: PULMONARY ARTERIAL HYPERTENSION
     Dosage: 10 MG, QD
     Route: 048
     Dates: start: 20160314, end: 20170208
  2. REMODULIN [Concomitant]
     Active Substance: TREPROSTINIL
     Indication: PULMONARY HYPERTENSION
     Dosage: 82 NG, UNK
     Route: 042
  3. ADCIRCA [Concomitant]
     Active Substance: TADALAFIL
     Indication: PULMONARY HYPERTENSION
     Dosage: 40 MG, QD
     Route: 048

REACTIONS (7)
  - Liver function test increased [Recovering/Resolving]
  - Haemoptysis [Unknown]
  - Pulmonary haemorrhage [Fatal]
  - Pulmonary arterial hypertension [Fatal]
  - Aspartate aminotransferase increased [Recovering/Resolving]
  - Alanine aminotransferase increased [Recovering/Resolving]
  - Pulmonary arterial pressure increased [Unknown]

NARRATIVE: CASE EVENT DATE: 201611
